FAERS Safety Report 24957167 (Version 2)
Quarter: 2025Q1

REPORT INFORMATION
  Report Type: Spontaneous
  Country: JP (occurrence: JP)
  Receive Date: 20250211
  Receipt Date: 20250302
  Transmission Date: 20250409
  Serious: Yes (Other)
  Sender: ASTELLAS
  Company Number: JP-ASTELLAS-2024-AER-018110

PATIENT
  Age: 41 Year
  Sex: Female

DRUGS (28)
  1. ZOLBETUXIMAB [Suspect]
     Active Substance: ZOLBETUXIMAB
     Indication: Gastric cancer
     Route: 065
  2. ZOLBETUXIMAB [Suspect]
     Active Substance: ZOLBETUXIMAB
     Route: 065
  3. ZOLBETUXIMAB [Suspect]
     Active Substance: ZOLBETUXIMAB
     Route: 065
  4. NIVOLUMAB [Concomitant]
     Active Substance: NIVOLUMAB
     Indication: Product used for unknown indication
     Route: 065
  5. METOCLOPRAMIDE [Concomitant]
     Active Substance: METOCLOPRAMIDE
     Indication: Nausea
     Route: 042
  6. METOCLOPRAMIDE [Concomitant]
     Active Substance: METOCLOPRAMIDE
     Indication: Vomiting
     Route: 042
  7. METOCLOPRAMIDE [Concomitant]
     Active Substance: METOCLOPRAMIDE
     Route: 042
  8. PALONOSETRON [Concomitant]
     Active Substance: PALONOSETRON
     Indication: Product used for unknown indication
     Route: 065
  9. PALONOSETRON [Concomitant]
     Active Substance: PALONOSETRON
     Route: 065
  10. PALONOSETRON [Concomitant]
     Active Substance: PALONOSETRON
     Route: 065
  11. FOSNETUPITANT [Concomitant]
     Active Substance: FOSNETUPITANT
     Indication: Product used for unknown indication
     Route: 065
  12. FOSNETUPITANT [Concomitant]
     Active Substance: FOSNETUPITANT
     Route: 065
  13. FOSNETUPITANT [Concomitant]
     Active Substance: FOSNETUPITANT
     Route: 065
  14. CHLORPHENIRAMINE [Concomitant]
     Active Substance: CHLORPHENIRAMINE
     Indication: Product used for unknown indication
     Route: 065
  15. CHLORPHENIRAMINE [Concomitant]
     Active Substance: CHLORPHENIRAMINE
     Route: 065
  16. CHLORPHENIRAMINE [Concomitant]
     Active Substance: CHLORPHENIRAMINE
     Route: 065
  17. OXALIPLATIN [Concomitant]
     Active Substance: OXALIPLATIN
     Indication: Gastric cancer
     Route: 065
  18. OXALIPLATIN [Concomitant]
     Active Substance: OXALIPLATIN
     Route: 065
  19. OXALIPLATIN [Concomitant]
     Active Substance: OXALIPLATIN
     Route: 065
  20. CAPECITABINE [Concomitant]
     Active Substance: CAPECITABINE
     Indication: Gastric cancer
     Route: 048
  21. CAPECITABINE [Concomitant]
     Active Substance: CAPECITABINE
     Route: 048
  22. CAPECITABINE [Concomitant]
     Active Substance: CAPECITABINE
     Route: 048
  23. DEXAMETHASONE [Concomitant]
     Active Substance: DEXAMETHASONE
     Indication: Product used for unknown indication
     Route: 065
  24. DEXAMETHASONE [Concomitant]
     Active Substance: DEXAMETHASONE
     Route: 065
  25. DEXAMETHASONE [Concomitant]
     Active Substance: DEXAMETHASONE
     Route: 065
  26. DEXTROSE\WATER [Concomitant]
     Active Substance: DEXTROSE\WATER
     Indication: Product used for unknown indication
     Route: 065
  27. DEXTROSE\WATER [Concomitant]
     Active Substance: DEXTROSE\WATER
     Route: 065
  28. DEXTROSE\WATER [Concomitant]
     Active Substance: DEXTROSE\WATER
     Route: 065

REACTIONS (7)
  - Malignant neoplasm progression [Unknown]
  - Vomiting [Unknown]
  - Nausea [Unknown]
  - Pyrexia [Unknown]
  - Nausea [Unknown]
  - Pyrexia [Unknown]
  - Nausea [Unknown]
